FAERS Safety Report 24259678 (Version 1)
Quarter: 2024Q3

REPORT INFORMATION
  Report Type: Spontaneous
  Country: US (occurrence: None)
  Receive Date: 20240827
  Receipt Date: 20240827
  Transmission Date: 20241017
  Serious: Yes (Death)
  Sender: Public
  Company Number: None

PATIENT
  Age: 73 Year
  Sex: Female
  Weight: 74.4 kg

DRUGS (1)
  1. LEQEMBI [Suspect]
     Active Substance: LECANEMAB-IRMB

REACTIONS (4)
  - Dizziness [None]
  - Nausea [None]
  - Cerebral haemorrhage [None]
  - Hospice care [None]

NARRATIVE: CASE EVENT DATE: 20240815
